FAERS Safety Report 23832547 (Version 1)
Quarter: 2024Q2

REPORT INFORMATION
  Report Type: Spontaneous
  Country: US (occurrence: US)
  Receive Date: 20240508
  Receipt Date: 20240508
  Transmission Date: 20240716
  Serious: No
  Sender: FDA-Public Use
  Company Number: US-SA-2024SA094767

PATIENT
  Age: 39 Year
  Sex: Female

DRUGS (2)
  1. ENJAYMO [Suspect]
     Active Substance: SUTIMLIMAB-JOME
     Indication: Cold type haemolytic anaemia
     Dosage: 7.5 G (7 VIALS), QW  FOR FIRST 2 WEEKS (DAY 0 AND DAY 7)
     Route: 042
     Dates: start: 202402, end: 2024
  2. ENJAYMO [Suspect]
     Active Substance: SUTIMLIMAB-JOME
     Dosage: 7.5 G (7 VIALS) , QOW BEGINNING ON DAY 21
     Route: 042
     Dates: start: 2024, end: 2024

REACTIONS (1)
  - Malaise [Unknown]

NARRATIVE: CASE EVENT DATE: 20240401
